FAERS Safety Report 10133428 (Version 1)
Quarter: 2014Q2

REPORT INFORMATION
  Report Type: Spontaneous
  Country: US (occurrence: US)
  Receive Date: 20140428
  Receipt Date: 20140428
  Transmission Date: 20141212
  Serious: Yes (Hospitalization)
  Sender: FDA-Public Use
  Company Number: US-B.I. PHARMACEUTICALS,INC./RIDGEFIELD-2014-BI-18425BP

PATIENT
  Sex: Male
  Weight: 60 kg

DRUGS (4)
  1. SPIRIVA [Suspect]
     Indication: CHRONIC OBSTRUCTIVE PULMONARY DISEASE
     Dosage: 18 MCG
     Route: 055
     Dates: start: 2009
  2. PROVENTIL [Concomitant]
     Dosage: FORMULATION: INHALATION SPRAY
     Route: 055
  3. ALBUTEROL NEBULIZER [Concomitant]
     Dosage: FORMULATION: INHALATION SPRAY
     Route: 055
  4. SYMBICORT [Concomitant]
     Dosage: FORMULATION: INHALATION SPRAY
     Route: 055

REACTIONS (3)
  - Lung infection [Recovered/Resolved]
  - Pneumonia [Recovered/Resolved]
  - Abnormal loss of weight [Not Recovered/Not Resolved]
